FAERS Safety Report 20995590 (Version 1)
Quarter: 2022Q2

REPORT INFORMATION
  Report Type: Spontaneous
  Country: US (occurrence: US)
  Receive Date: 20220623
  Receipt Date: 20220623
  Transmission Date: 20220721
  Serious: No
  Sender: FDA-Public Use
  Company Number: US-Accord-240821

PATIENT
  Sex: Male

DRUGS (1)
  1. CLONAZEPAM [Suspect]
     Active Substance: CLONAZEPAM
     Indication: Anxiety
     Dosage: STRENGTH: 1MG
     Route: 048

REACTIONS (4)
  - Salivary hypersecretion [Unknown]
  - Angular cheilitis [Unknown]
  - Headache [Unknown]
  - Sexual dysfunction [Unknown]
